FAERS Safety Report 11912946 (Version 1)
Quarter: 2016Q1

REPORT INFORMATION
  Report Type: Spontaneous
  Country: US (occurrence: None)
  Receive Date: 20160112
  Receipt Date: 20160112
  Transmission Date: 20160526
  Serious: No
  Sender: FDA-Public Use
  Company Number: None

PATIENT
  Age: 16 Year
  Sex: Female

DRUGS (1)
  1. HUMIRA [Suspect]
     Active Substance: ADALIMUMAB
     Indication: COLITIS ULCERATIVE
     Dosage: 40 MG, EVERY TWO WEEKS
     Route: 058
     Dates: start: 20151203

REACTIONS (2)
  - Extra dose administered [None]
  - Incorrect dose administered [None]

NARRATIVE: CASE EVENT DATE: 20160111
